FAERS Safety Report 7815198-2 (Version None)
Quarter: 2011Q4

REPORT INFORMATION
  Report Type: 
  Country: None (occurrence: None)
  Receive Date: 20111014
  Receipt Date: 20111004
  Transmission Date: 20120403
  Serious: Yes (Other)
  Sender: FDA-Public Use
  Company Number: US-BAYER-200825389NA

PATIENT
  Age: 70 Year
  Sex: Female

DRUGS (30)
  1. MULTIHANCE [Suspect]
     Indication: NUCLEAR MAGNETIC RESONANCE IMAGING
  2. MYFORTIC [Concomitant]
  3. ISOSORBIDE DINITRATE [Concomitant]
  4. GENGRAF [Concomitant]
  5. MYCOPHENOLATE MOFETIL (CELLCEPT) [Concomitant]
  6. MAGNEVIST [Suspect]
     Dates: start: 20040203, end: 20040203
  7. PROHANCE [Suspect]
     Indication: NUCLEAR MAGNETIC RESONANCE IMAGING
  8. CYCLOSPORINE [Concomitant]
  9. GADOLINIUM IN UNSPECIFIED DRUG [Suspect]
     Indication: ANGIOGRAM
     Dosage: UNK UNK, ONCE
     Dates: start: 20040105, end: 20040105
  10. OPTIMARK [Suspect]
     Indication: NUCLEAR MAGNETIC RESONANCE IMAGING
  11. HYDRALAZINE HCL [Concomitant]
  12. NORTRIPTYLINE HCL [Concomitant]
  13. MAGNEVIST [Suspect]
     Dates: start: 20060418, end: 20060418
  14. MAGNEVIST [Suspect]
     Dates: start: 20031105, end: 20031105
  15. FUROSEMIDE [Concomitant]
  16. TRENTAL [Concomitant]
  17. ALLOPURINOL [Concomitant]
  18. DILTIAZEM HCL [Concomitant]
  19. PHOSLO [Concomitant]
  20. OMNISCAN [Suspect]
     Indication: NUCLEAR MAGNETIC RESONANCE IMAGING
  21. CLONIDINE [Concomitant]
  22. TRAMADOL HCL [Concomitant]
  23. NEPHROCAPS [Concomitant]
  24. RENAGEL [Concomitant]
  25. MAGNEVIST [Suspect]
     Indication: ANGIOGRAM
     Dates: start: 20031023, end: 20031023
  26. PROCRIT [Concomitant]
  27. METOPROLOL TARTRATE [Concomitant]
  28. LISINOPRIL [Concomitant]
  29. PREDNISONE [Concomitant]
  30. ACETYLSALICYLIC ACID SRT [Concomitant]

REACTIONS (19)
  - SKIN INDURATION [None]
  - MOBILITY DECREASED [None]
  - NEPHROGENIC SYSTEMIC FIBROSIS [None]
  - HYPERTENSION [None]
  - ANHEDONIA [None]
  - ARTHRALGIA [None]
  - MUSCLE TIGHTNESS [None]
  - PEAU D'ORANGE [None]
  - OEDEMA PERIPHERAL [None]
  - INJURY [None]
  - SKIN HYPERTROPHY [None]
  - SKIN TIGHTNESS [None]
  - MUSCULAR WEAKNESS [None]
  - PAIN [None]
  - GAIT DISTURBANCE [None]
  - ANXIETY [None]
  - RASH MACULAR [None]
  - JOINT RANGE OF MOTION DECREASED [None]
  - GROIN PAIN [None]
